FAERS Safety Report 15603608 (Version 1)
Quarter: 2018Q4

REPORT INFORMATION
  Report Type: Report from Study
  Country: GB (occurrence: DE)
  Receive Date: 20181109
  Receipt Date: 20181109
  Transmission Date: 20190205
  Serious: Yes (Life-Threatening)
  Sender: FDA-Public Use
  Company Number: DE-B.I. PHARMACEUTICALS,INC./RIDGEFIELD-2018-12-001333

PATIENT
  Age: 86 Year
  Sex: Female

DRUGS (25)
  1. XYLOCAINE [Suspect]
     Active Substance: LIDOCAINE HYDROCHLORIDE
     Indication: LOCAL ANAESTHESIA
     Route: 058
     Dates: start: 20000913, end: 20000913
  2. NOCTAMID [Suspect]
     Active Substance: LORMETAZEPAM
     Indication: SEDATION
     Dosage: 2 DF (DAILY DOSE), , ORAL
     Route: 048
     Dates: start: 20000913, end: 20000913
  3. NORADRENALINE [Suspect]
     Active Substance: NOREPINEPHRINE
     Indication: CORONARY ARTERY DISEASE
     Route: 042
     Dates: start: 20000913, end: 20000913
  4. FRAGMIN P [Concomitant]
     Active Substance: DALTEPARIN SODIUM
     Indication: COAGULOPATHY
     Route: 058
     Dates: start: 20000820, end: 20000917
  5. INSULIN [Concomitant]
     Active Substance: INSULIN NOS
     Indication: DIABETES MELLITUS
     Route: 050
     Dates: start: 20000820, end: 20000917
  6. EUGLUCON [Suspect]
     Active Substance: GLYBURIDE
     Indication: DIABETES MELLITUS
     Route: 048
     Dates: start: 20000820, end: 20000917
  7. PLAVIX [Suspect]
     Active Substance: CLOPIDOGREL BISULFATE
     Indication: COAGULOPATHY
     Dosage: 75 MG (DAILY DOSE), , ORAL
     Route: 048
     Dates: start: 20000913, end: 20000917
  8. CATAPRESAN [Suspect]
     Active Substance: CLONIDINE
     Indication: CORONARY ARTERY DISEASE
     Route: 042
     Dates: start: 20000913, end: 20000913
  9. UNAT [Concomitant]
     Active Substance: TORSEMIDE
     Indication: CARDIAC FAILURE
     Dosage: 5 MG (DAILY DOSE), , ORAL
     Route: 048
     Dates: start: 20000820, end: 20000917
  10. DIAZEPAM. [Suspect]
     Active Substance: DIAZEPAM
     Indication: SEDATION
     Route: 042
     Dates: start: 20000913, end: 20000913
  11. COTRIM [Concomitant]
     Active Substance: SULFAMETHOXAZOLE\TRIMETHOPRIM
     Indication: URINARY TRACT INFECTION
     Dosage: 1 DF (DAILY DOSE), , ORAL
     Route: 048
     Dates: start: 20000916, end: 20000917
  12. ASPIRIN. [Suspect]
     Active Substance: ASPIRIN
     Indication: COAGULOPATHY
     Route: 048
     Dates: start: 20000828, end: 20000831
  13. DUROGESIC [Concomitant]
     Active Substance: FENTANYL
     Indication: PAIN
     Route: 062
     Dates: start: 20000820, end: 20000916
  14. CALCIUM EFFERVESCENT [Concomitant]
     Indication: OSTEOPOROSIS
     Dosage: 1 DF (DAILY DOSE), , ORAL
     Route: 048
     Dates: start: 20000820, end: 20000917
  15. NOVALGIN (METAMIZOLE SODIUM) [Suspect]
     Active Substance: METAMIZOLE SODIUM
     Indication: PAIN
     Dosage: 20 GTT (DAILY DOSE), , ORAL
     Route: 048
     Dates: start: 20000820, end: 20000917
  16. GLUCOSE [Concomitant]
     Active Substance: DEXTROSE
     Indication: CARDIOVASCULAR DISORDER
     Route: 042
     Dates: start: 20000913, end: 20000913
  17. RINGERS SOLUTION [Concomitant]
     Active Substance: CALCIUM CHLORIDE\POTASSIUM CHLORIDE\SODIUM CHLORIDE
     Indication: ELECTROLYTE DEPLETION
     Route: 042
     Dates: start: 20000913, end: 20000914
  18. DECORTIN [Concomitant]
     Active Substance: PREDNISONE
     Indication: DERMATITIS BULLOUS
     Route: 048
     Dates: start: 20000820, end: 20000917
  19. ANTRAMUPS [Concomitant]
     Active Substance: OMEPRAZOLE
     Indication: PROPHYLAXIS AGAINST GASTROINTESTINAL ULCER
     Dosage: 20 MG (DAILY DOSE), , ORAL
     Route: 048
     Dates: start: 20000820, end: 20000917
  20. VIOXX [Suspect]
     Active Substance: ROFECOXIB
     Indication: RHEUMATIC DISORDER
     Dosage: 25 MG (DAILY DOSE), , ORAL
     Route: 048
     Dates: start: 20000907, end: 20000917
  21. ASPIRIN. [Suspect]
     Active Substance: ASPIRIN
     Route: 048
     Dates: start: 20000914, end: 20000917
  22. ORTHO-GYNEST [Concomitant]
     Active Substance: ESTRIOL
     Indication: VULVOVAGINAL DISORDER
     Route: 067
     Dates: start: 20000820, end: 20000906
  23. TAVEGIL [Concomitant]
     Active Substance: CLEMASTINE FUMARATE
     Indication: PEMPHIGOID
     Dosage: 2 DF (DAILY DOSE), , ORAL
     Route: 048
     Dates: start: 20000820, end: 20000828
  24. CORVATON [Concomitant]
     Active Substance: MOLSIDOMINE
     Indication: CORONARY ARTERY DISEASE
     Dosage: 1 DF (DAILY DOSE), , ORAL
     Route: 048
     Dates: start: 20000820, end: 20000914
  25. MONO MACK [Concomitant]
     Active Substance: ISOSORBIDE MONONITRATE
     Indication: ANGINA PECTORIS
     Dosage: 1 DF (DAILY DOSE), , ORAL
     Route: 048
     Dates: start: 20000820, end: 20000917

REACTIONS (6)
  - Toxic epidermal necrolysis [Recovering/Resolving]
  - Generalised erythema [Recovering/Resolving]
  - Mucosal erosion [Recovering/Resolving]
  - Mouth ulceration [Recovering/Resolving]
  - Blister [Recovering/Resolving]
  - Conjunctivitis [Recovering/Resolving]

NARRATIVE: CASE EVENT DATE: 20000916
